FAERS Safety Report 15956967 (Version 1)
Quarter: 2019Q1

REPORT INFORMATION
  Report Type: Spontaneous
  Country: CA (occurrence: CA)
  Receive Date: 20190213
  Receipt Date: 20190213
  Transmission Date: 20190417
  Serious: Yes (Other)
  Sender: FDA-Public Use
  Company Number: CA-PFIZER INC-2019057320

PATIENT
  Age: 75 Year
  Sex: Female

DRUGS (19)
  1. ENALAPRIL [Concomitant]
     Active Substance: ENALAPRIL
     Dosage: 10 MG, 1X/DAY
  2. ZOLEDRONIC ACID [Concomitant]
     Active Substance: ZOLEDRONIC ACID
     Dosage: UNK
  3. LEVOTHYROXINE SODIUM. [Concomitant]
     Active Substance: LEVOTHYROXINE SODIUM
     Dosage: 1 MG, UNK
  4. MORPHINE SULFATE. [Concomitant]
     Active Substance: MORPHINE SULFATE
     Dosage: 5 MG, UNK (1 EVERY 2 HOURS)
  5. DANTRIUM [Concomitant]
     Active Substance: DANTROLENE SODIUM
     Dosage: 25 MG, 1X/DAY
  6. M-ESLON [Concomitant]
     Active Substance: MORPHINE SULFATE
     Dosage: 15 MG, 2X/DAY
  7. METOPROLOL. [Concomitant]
     Active Substance: METOPROLOL
     Dosage: 25 MG, 2X/DAY
  8. RESTASIS [Concomitant]
     Active Substance: CYCLOSPORINE
     Dosage: UNK
  9. SALBUTAMOL [Concomitant]
     Active Substance: ALBUTEROL
     Dosage: 100 MG, 4X/DAY
  10. IBRANCE [Suspect]
     Active Substance: PALBOCICLIB
     Dosage: 125 MG, 1X/DAY
     Route: 048
  11. BETAMETHASONE VALERATE. [Concomitant]
     Active Substance: BETAMETHASONE VALERATE
     Dosage: UNK
  12. M-ESLON [Concomitant]
     Active Substance: MORPHINE SULFATE
     Dosage: 30 MG, 2X/DAY
  13. BUSCOPAN [Concomitant]
     Active Substance: BUTYLSCOPOLAMINE BROMIDE
     Dosage: 10 MG, 2X/DAY
  14. SYMBICORT [Concomitant]
     Active Substance: BUDESONIDE\FORMOTEROL FUMARATE DIHYDRATE
     Dosage: 100 MG, 2X/DAY
  15. FASLODEX [Suspect]
     Active Substance: FULVESTRANT
     Dosage: UNK
     Route: 030
  16. CLOBETASOL [Concomitant]
     Active Substance: CLOBETASOL
     Dosage: UNK
  17. LORAZEPAM. [Concomitant]
     Active Substance: LORAZEPAM
     Dosage: 1 MG, 1X/DAY
     Route: 048
  18. PANTOPRAZOLE [Concomitant]
     Active Substance: PANTOPRAZOLE
     Dosage: 40 MG, 2X/DAY
  19. SERTRALINE [Concomitant]
     Active Substance: SERTRALINE HYDROCHLORIDE
     Dosage: 25 MG, 1X/DAY

REACTIONS (4)
  - Bone lesion [Unknown]
  - Diarrhoea [Unknown]
  - Asthenia [Unknown]
  - Neoplasm progression [Unknown]
